FAERS Safety Report 25733475 (Version 1)
Quarter: 2025Q3

REPORT INFORMATION
  Report Type: Spontaneous
  Country: CA (occurrence: CA)
  Receive Date: 20250828
  Receipt Date: 20250828
  Transmission Date: 20251020
  Serious: Yes (Hospitalization, Other)
  Sender: CELLTRION
  Company Number: CA-CELLTRION INC.-2025CA029921

PATIENT

DRUGS (14)
  1. INFLIXIMAB [Suspect]
     Active Substance: INFLIXIMAB
     Indication: Ankylosing spondylitis
     Route: 042
  2. INFLIXIMAB [Suspect]
     Active Substance: INFLIXIMAB
     Route: 042
  3. INFLIXIMAB [Suspect]
     Active Substance: INFLIXIMAB
     Route: 042
  4. INFLIXIMAB [Suspect]
     Active Substance: INFLIXIMAB
     Route: 042
  5. INFLIXIMAB [Suspect]
     Active Substance: INFLIXIMAB
     Route: 042
  6. INFLIXIMAB [Suspect]
     Active Substance: INFLIXIMAB
     Route: 042
  7. INFLIXIMAB [Suspect]
     Active Substance: INFLIXIMAB
     Route: 042
  8. INFLIXIMAB [Suspect]
     Active Substance: INFLIXIMAB
     Route: 042
  9. METHOTREXATE [Concomitant]
     Active Substance: METHOTREXATE
     Indication: Ankylosing spondylitis
     Route: 048
  10. METHOTREXATE [Concomitant]
     Active Substance: METHOTREXATE
     Indication: Ankylosing spondylitis
     Dosage: 15 MILLIGRAM, 1 EVERY 1 WEEKS
     Route: 048
  11. PREDNISONE [Concomitant]
     Active Substance: PREDNISONE
     Indication: Chronic obstructive pulmonary disease
     Route: 048
  12. PREDNISONE [Concomitant]
     Active Substance: PREDNISONE
     Indication: Ankylosing spondylitis
  13. PREDNISONE [Concomitant]
     Active Substance: PREDNISONE
     Indication: Chronic obstructive pulmonary disease
  14. PREDNISONE [Concomitant]
     Active Substance: PREDNISONE
     Indication: Ankylosing spondylitis

REACTIONS (10)
  - Fall [Not Recovered/Not Resolved]
  - Patella fracture [Not Recovered/Not Resolved]
  - Weight decreased [Not Recovered/Not Resolved]
  - Vomiting [Not Recovered/Not Resolved]
  - Nausea [Not Recovered/Not Resolved]
  - Urinary tract infection [Not Recovered/Not Resolved]
  - Influenza [Not Recovered/Not Resolved]
  - Diarrhoea [Not Recovered/Not Resolved]
  - Incorrect dose administered [Not Recovered/Not Resolved]
  - Overdose [Unknown]
